FAERS Safety Report 16849269 (Version 1)
Quarter: 2019Q3

REPORT INFORMATION
  Report Type: Spontaneous
  Country: US (occurrence: US)
  Receive Date: 20190925
  Receipt Date: 20190925
  Transmission Date: 20191005
  Serious: No
  Sender: FDA-Public Use
  Company Number: US-ELI_LILLY_AND_COMPANY-US201909011690

PATIENT
  Sex: Female

DRUGS (2)
  1. HUMULIN R [Suspect]
     Active Substance: INSULIN HUMAN
     Indication: PRODUCT USED FOR UNKNOWN INDICATION
     Dosage: UNK UNK, UNKNOWN
     Route: 058
  2. HUMALOG [Suspect]
     Active Substance: INSULIN LISPRO
     Indication: PRODUCT USED FOR UNKNOWN INDICATION
     Dosage: UNK UNK, UNKNOWN
     Route: 058

REACTIONS (8)
  - Constipation [Unknown]
  - Glycosylated haemoglobin increased [Unknown]
  - Diarrhoea [Unknown]
  - Peripheral swelling [Not Recovered/Not Resolved]
  - Migraine [Not Recovered/Not Resolved]
  - Incontinence [Unknown]
  - Feeling abnormal [Not Recovered/Not Resolved]
  - Oedema [Not Recovered/Not Resolved]
